FAERS Safety Report 6453653-0 (Version None)
Quarter: 2009Q4

REPORT INFORMATION
  Report Type: 
  Country: None (occurrence: None)
  Receive Date: 20091124
  Receipt Date: 20091112
  Transmission Date: 20100525
  Serious: Yes (Disabling)
  Sender: FDA-Public Use
  Company Number: PHHY2009GB32898

PATIENT
  Sex: Male
  Weight: 71 kg

DRUGS (8)
  1. ZOMETA [Suspect]
     Indication: METASTASES TO BONE
     Dosage: UNK
     Dates: start: 20090706
  2. ZOLADEX [Concomitant]
     Indication: PROSTATE CANCER
     Dosage: 10.8 MG EVERY 12 WEEKS
     Route: 058
     Dates: start: 20080101
  3. MONOMAX [Concomitant]
     Indication: MYOCARDIAL ISCHAEMIA
     Dosage: 60 MG, UNK
     Route: 048
  4. NICORANDIL [Concomitant]
     Indication: MYOCARDIAL ISCHAEMIA
     Dosage: 10 MG, UNK
     Route: 048
  5. CANDESARTAN CILEXETIL [Concomitant]
     Indication: MYOCARDIAL ISCHAEMIA
     Dosage: 4 MG, UNK
     Route: 048
  6. LEVOTROXINE [Concomitant]
     Indication: HYPOTHYROIDISM
     Dosage: 50 UG, UNK
     Route: 048
  7. ASPIRIN [Concomitant]
     Dosage: 75 MG, UNK
     Route: 048
  8. CO-CODAMOL [Concomitant]
     Indication: BONE PAIN
     Dosage: 10/500, QDS
     Route: 048
     Dates: start: 20080101

REACTIONS (5)
  - ARTHRALGIA [None]
  - BONE DISORDER [None]
  - JOINT SWELLING [None]
  - MOVEMENT DISORDER [None]
  - RHEUMATOID ARTHRITIS [None]
